FAERS Safety Report 4264556-4 (Version None)
Quarter: 2004Q1

REPORT INFORMATION
  Report Type: 
  Country: None (occurrence: None)
  Receive Date: 20040106
  Receipt Date: 19930910
  Transmission Date: 20041129
  Serious: Yes (Death, Life-Threatening, Hospitalization)
  Sender: FDA-Public Use
  Company Number: WAES 92110158

PATIENT
  Sex: Female

DRUGS (4)
  1. DIAZEPAM [Concomitant]
     Dates: start: 19920112, end: 19920114
  2. INDOCIN [Suspect]
     Indication: PREMATURE LABOUR
     Route: 054
     Dates: start: 19920112, end: 19920114
  3. MAGNESIUM SULFATE [Concomitant]
     Dates: start: 19920112, end: 19920114
  4. RITODRINE [Concomitant]
     Dates: start: 19920112, end: 19920114

REACTIONS (13)
  - ACUTE RESPIRATORY DISTRESS SYNDROME [None]
  - CAESAREAN SECTION [None]
  - CANDIDA SEPSIS [None]
  - DRUG INEFFECTIVE [None]
  - HYPERKALAEMIA [None]
  - MATERNAL DRUGS AFFECTING FOETUS [None]
  - NEONATAL DISORDER [None]
  - NEONATAL RESPIRATORY DISTRESS SYNDROME [None]
  - OLIGURIA [None]
  - PREMATURE BABY [None]
  - RENAL FAILURE ACUTE [None]
  - RENAL FAILURE NEONATAL [None]
  - SYSTEMIC CANDIDA [None]
